FAERS Safety Report 10039771 (Version 2)
Quarter: 2014Q1

REPORT INFORMATION
  Report Type: Spontaneous
  Country: JP (occurrence: JP)
  Receive Date: 20140326
  Receipt Date: 20140326
  Transmission Date: 20141002
  Serious: Yes (Other)
  Sender: FDA-Public Use
  Company Number: JP-JNJFOC-20140307882

PATIENT
  Age: 55 Year
  Sex: Male

DRUGS (7)
  1. SOVRIAD [Suspect]
     Indication: CHRONIC HEPATITIS C
     Route: 048
     Dates: start: 20140111
  2. PEGINTRON [Suspect]
     Indication: CHRONIC HEPATITIS C
     Route: 058
     Dates: start: 20140111, end: 20140302
  3. PEGINTRON [Suspect]
     Indication: CHRONIC HEPATITIS C
     Route: 058
     Dates: start: 201403
  4. REBETOL [Suspect]
     Indication: CHRONIC HEPATITIS C
     Route: 048
     Dates: start: 20140111, end: 20140307
  5. REBETOL [Suspect]
     Indication: CHRONIC HEPATITIS C
     Route: 048
     Dates: start: 201403
  6. FEBURIC [Concomitant]
     Indication: GOUT
     Route: 048
     Dates: start: 20131226
  7. VOLTAREN [Concomitant]
     Indication: ANALGESIC THERAPY
     Route: 054
     Dates: start: 20140111

REACTIONS (2)
  - Neutrophil count decreased [Recovered/Resolved]
  - White blood cell count decreased [Recovered/Resolved]
